FAERS Safety Report 4553644-0 (Version None)
Quarter: 2004Q4

REPORT INFORMATION
  Report Type: 
  Country: None (occurrence: None)
  Receive Date: 20041227
  Receipt Date: 20041020
  Transmission Date: 20050328
  Serious: No
  Sender: FDA-Public Use
  Company Number: 04P-163-0278051-00

PATIENT
  Age: 61 Year
  Sex: Female
  Weight: 56.6996 kg

DRUGS (7)
  1. HUMIRA [Suspect]
     Indication: RHEUMATOID ARTHRITIS
     Dosage: 1 IN 2 WK, SUBCUTANEOUS
     Route: 058
     Dates: start: 20040601
  2. METHOTREXATE SODIUM [Concomitant]
  3. TRAZODONE [Concomitant]
  4. MULTI-VITAMINS [Concomitant]
  5. ERGOCALCIFEROL [Concomitant]
  6. LORAZEPAM [Concomitant]
  7. FLUTICASONE PROPIONATE [Concomitant]

REACTIONS (2)
  - FATIGUE [None]
  - RHEUMATOID ARTHRITIS [None]
